FAERS Safety Report 9890242 (Version 2)
Quarter: 2014Q2

REPORT INFORMATION
  Report Type: Spontaneous
  Country: US (occurrence: US)
  Receive Date: 20140212
  Receipt Date: 20140414
  Transmission Date: 20141212
  Serious: No
  Sender: FDA-Public Use
  Company Number: US-BIOGENIDEC-2014BI012327

PATIENT
  Age: 49 Year
  Sex: Female

DRUGS (6)
  1. TECFIDERA [Suspect]
     Indication: MULTIPLE SCLEROSIS
     Route: 048
     Dates: start: 20130603
  2. TECFIDERA [Suspect]
     Indication: MULTIPLE SCLEROSIS
     Route: 048
  3. TECFIDERA [Suspect]
     Indication: MULTIPLE SCLEROSIS
  4. CYCLOBENZAPRINE HCI [Concomitant]
  5. FLUOXETINE HCI (PMDD) [Concomitant]
  6. DICLOFENAC SODIUM [Concomitant]

REACTIONS (5)
  - CD4 lymphocytes abnormal [Not Recovered/Not Resolved]
  - Sinusitis fungal [Not Recovered/Not Resolved]
  - Lymphopenia [Not Recovered/Not Resolved]
  - Laboratory test abnormal [Unknown]
  - Sinusitis [Unknown]
